FAERS Safety Report 4889956-0 (Version None)
Quarter: 2006Q1

REPORT INFORMATION
  Report Type: 
  Country: None (occurrence: None)
  Receive Date: 20060123
  Receipt Date: 20060123
  Transmission Date: 20060701
  Serious: Yes (Hospitalization, Other)
  Sender: FDA-Public Use
  Company Number: None

PATIENT
  Sex: Male
  Weight: 83.9 kg

DRUGS (1)
  1. VINCRISTINE SULFATE [Suspect]
     Indication: HAEMATOPOIETIC NEOPLASM
     Dosage: SEE IMAGE
     Route: 042
     Dates: start: 20051026

REACTIONS (4)
  - PLATELET COUNT DECREASED [None]
  - RENAL FAILURE ACUTE [None]
  - SMALL INTESTINAL OBSTRUCTION [None]
  - STAPHYLOCOCCAL INFECTION [None]
